FAERS Safety Report 18898713 (Version 1)
Quarter: 2021Q1

REPORT INFORMATION
  Report Type: Spontaneous
  Country: GB (occurrence: GB)
  Receive Date: 20210216
  Receipt Date: 20210216
  Transmission Date: 20210420
  Serious: Yes (Life-Threatening, Hospitalization, Other)
  Sender: FDA-Public Use
  Company Number: GB-AZURITY PHARMACEUTICALS, INC.-2021AZY00019

PATIENT
  Age: 48 Year
  Sex: Female

DRUGS (2)
  1. BENEPALI [Concomitant]
     Active Substance: ETANERCEPT
     Indication: RHEUMATOID ARTHRITIS
     Route: 065
  2. METHOTREXATE. [Suspect]
     Active Substance: METHOTREXATE
     Indication: RHEUMATOID ARTHRITIS
     Route: 065

REACTIONS (5)
  - Sepsis [Recovered/Resolved]
  - Splenic rupture [Recovered/Resolved]
  - Pneumonia [Recovered/Resolved]
  - Pancytopenia [Recovered/Resolved]
  - Chronic kidney disease [Recovered/Resolved]
